FAERS Safety Report 23885903 (Version 2)
Quarter: 2025Q1

REPORT INFORMATION
  Report Type: Spontaneous
  Country: US (occurrence: US)
  Receive Date: 20240522
  Receipt Date: 20250313
  Transmission Date: 20250409
  Serious: Yes (Other)
  Sender: BAYER HEALTHCARE PHARMACEUTICALS INC.
  Company Number: US-BAYER-2024A073952

PATIENT
  Age: 39 Year
  Sex: Female

DRUGS (5)
  1. MIRENA [Suspect]
     Active Substance: LEVONORGESTREL
     Indication: Intrauterine contraception
     Dosage: 20?G/DAY
     Route: 015
     Dates: start: 202305, end: 20240327
  2. MIRENA [Suspect]
     Active Substance: LEVONORGESTREL
     Indication: Abnormal uterine bleeding
  3. MIRENA [Suspect]
     Active Substance: LEVONORGESTREL
     Indication: Vaginal haemorrhage
  4. MIRENA [Suspect]
     Active Substance: LEVONORGESTREL
     Indication: Benign connective tissue neoplasm
  5. MIRENA [Suspect]
     Active Substance: LEVONORGESTREL
     Indication: Benign soft tissue neoplasm

REACTIONS (2)
  - Uterine leiomyoma [None]
  - Genital haemorrhage [None]
